FAERS Safety Report 4279495-2 (Version None)
Quarter: 2004Q1

REPORT INFORMATION
  Report Type: 
  Country: None (occurrence: None)
  Receive Date: 20040123
  Receipt Date: 20040113
  Transmission Date: 20041129
  Serious: Yes (Death, Hospitalization)
  Sender: FDA-Public Use
  Company Number: ES-JNJFOC-20040102353

PATIENT
  Sex: Female

DRUGS (1)
  1. REMICADE [Suspect]
     Indication: RHEUMATOID ARTHRITIS
     Dosage: INTRAVENOUS
     Route: 042

REACTIONS (5)
  - CARDIAC FAILURE [None]
  - HAEMATURIA [None]
  - HYDRONEPHROSIS [None]
  - PLEURAL EFFUSION [None]
  - RENAL FAILURE [None]
